FAERS Safety Report 18505606 (Version 5)
Quarter: 2021Q1

REPORT INFORMATION
  Report Type: Report from Study
  Country: MA (occurrence: MA)
  Receive Date: 20201116
  Receipt Date: 20210112
  Transmission Date: 20210419
  Serious: No
  Sender: FDA-Public Use
  Company Number: NVSC2020MA274144

PATIENT
  Age: 56 Year
  Sex: Female

DRUGS (3)
  1. COSENTYX [Suspect]
     Active Substance: SECUKINUMAB
     Dosage: 300 MG, Q4W
     Route: 058
  2. COSENTYX [Suspect]
     Active Substance: SECUKINUMAB
     Indication: PSORIATIC ARTHROPATHY
     Dosage: 300 MG, QW
     Route: 058
     Dates: start: 20201007
  3. VITAMIN D [Concomitant]
     Active Substance: VITAMIN D NOS
     Indication: PRODUCT USED FOR UNKNOWN INDICATION
     Dosage: UNK
     Route: 065

REACTIONS (29)
  - Palpitations [Unknown]
  - Chills [Unknown]
  - Abdominal pain lower [Unknown]
  - Arthritis [Unknown]
  - Incorrect dose administered [Unknown]
  - Anosmia [Recovered/Resolved]
  - Stress [Unknown]
  - Chest pain [Unknown]
  - Sciatica [Unknown]
  - Syringe issue [Unknown]
  - Drug ineffective [Unknown]
  - Feeling abnormal [Recovered/Resolved]
  - Pyrexia [Unknown]
  - SARS-CoV-2 test positive [Recovered/Resolved]
  - Nausea [Recovered/Resolved]
  - Oropharyngeal pain [Unknown]
  - Arthralgia [Not Recovered/Not Resolved]
  - Psoriasis [Unknown]
  - Vision blurred [Recovered/Resolved]
  - Ageusia [Recovered/Resolved]
  - Pain [Recovering/Resolving]
  - Headache [Unknown]
  - Back pain [Not Recovered/Not Resolved]
  - Bone pain [Not Recovered/Not Resolved]
  - Fatigue [Unknown]
  - Fear [Unknown]
  - Diarrhoea [Unknown]
  - Pain in extremity [Unknown]
  - Nasopharyngitis [Recovered/Resolved]

NARRATIVE: CASE EVENT DATE: 20201007
